FAERS Safety Report 7374911-1 (Version None)
Quarter: 2011Q1

REPORT INFORMATION
  Report Type: 
  Country: None (occurrence: None)
  Receive Date: 20110325
  Receipt Date: 20110315
  Transmission Date: 20110831
  Serious: Yes (Other)
  Sender: FDA-Public Use
  Company Number: GB-NOVOPROD-325044

PATIENT
  Age: 74 Year
  Sex: Male

DRUGS (10)
  1. ASCORBIC ACID [Concomitant]
     Indication: PRODUCT USED FOR UNKNOWN INDICATION
  2. TRAMADOL HCL [Concomitant]
     Indication: PRODUCT USED FOR UNKNOWN INDICATION
  3. EXTRANEAL [Suspect]
     Indication: PERITONEAL DIALYSIS
  4. FUROSEMIDE [Concomitant]
     Indication: PRODUCT USED FOR UNKNOWN INDICATION
  5. MORPHINE SULFATE [Concomitant]
     Indication: PRODUCT USED FOR UNKNOWN INDICATION
  6. MIXTARD 30A? HM(GE) [Suspect]
     Indication: DIABETES MELLITUS
     Dosage: 30 U, BID
     Route: 058
  7. NUTRINEAL PD 4 MIT 1.1% AMINOSAEUREN [Concomitant]
     Indication: PERITONEAL DIALYSIS
     Dosage: 2 L, UNK
     Route: 033
  8. RANITIDINE [Concomitant]
     Indication: PRODUCT USED FOR UNKNOWN INDICATION
  9. GLUCOSE [Concomitant]
     Indication: PERITONEAL DIALYSIS
     Dosage: 2 L, UNK
     Route: 033
  10. LACTULOSE [Concomitant]
     Indication: PRODUCT USED FOR UNKNOWN INDICATION

REACTIONS (2)
  - BLOOD GLUCOSE FALSE POSITIVE [None]
  - HYPOGLYCAEMIC UNCONSCIOUSNESS [None]
